FAERS Safety Report 14862750 (Version 1)
Quarter: 2018Q2

REPORT INFORMATION
  Report Type: Spontaneous
  Country: US (occurrence: US)
  Receive Date: 20180508
  Receipt Date: 20180508
  Transmission Date: 20180711
  Serious: No
  Sender: FDA-Public Use
  Company Number: US-ALKERMES INC.-ALK-2017-001925

PATIENT
  Sex: Female

DRUGS (1)
  1. VIVITROL [Suspect]
     Active Substance: NALTREXONE
     Indication: ALCOHOLISM
     Dosage: 380 MG, QMO
     Route: 030
     Dates: start: 20170406

REACTIONS (10)
  - Pain in extremity [Unknown]
  - Muscle strain [Unknown]
  - Nausea [Unknown]
  - Chills [Unknown]
  - Injection site reaction [Recovered/Resolved]
  - Injection site pain [Recovered/Resolved]
  - Alcoholism [Unknown]
  - Decreased appetite [Unknown]
  - Dizziness [Unknown]
  - Vomiting [Not Recovered/Not Resolved]

NARRATIVE: CASE EVENT DATE: 20170406
